FAERS Safety Report 23538949 (Version 1)
Quarter: 2024Q1

REPORT INFORMATION
  Report Type: Spontaneous
  Country: FR (occurrence: FR)
  Receive Date: 20240219
  Receipt Date: 20240219
  Transmission Date: 20240410
  Serious: Yes (Other)
  Sender: FDA-Public Use
  Company Number: FR-009507513-2401FRA000149

PATIENT
  Age: 59 Year
  Sex: Female
  Weight: 108 kg

DRUGS (3)
  1. PACLITAXEL [Suspect]
     Active Substance: PACLITAXEL
     Indication: Triple negative breast cancer
     Dosage: 80 MILLIGRAM/SQ. METER
     Route: 065
     Dates: start: 20230802, end: 20230920
  2. CARBOPLATIN [Suspect]
     Active Substance: CARBOPLATIN
     Indication: Triple negative breast cancer
     Dosage: 1.50 AREA UNDER THE CURVE (AUC)
     Route: 065
     Dates: start: 20230802, end: 20230920
  3. KEYTRUDA [Suspect]
     Active Substance: PEMBROLIZUMAB
     Indication: Triple negative breast cancer
     Dosage: 400 MILLIGRAM, EVERY 6 WEEKS
     Route: 065
     Dates: start: 20230802, end: 20230913

REACTIONS (3)
  - Malignant neoplasm progression [Unknown]
  - Fluorescent in situ hybridisation positive [Unknown]
  - Human epidermal growth factor receptor positive [Not Recovered/Not Resolved]

NARRATIVE: CASE EVENT DATE: 20230922
